FAERS Safety Report 8776722 (Version 1)
Quarter: 2012Q4

REPORT INFORMATION
  Report Type: 
  Country: US (occurrence: US)
  Receive Date: 20120907
  Receipt Date: 20120907
  Transmission Date: 20130627
  Serious: No
  Sender: FDA-Public Use
  Company Number: US-ELI_LILLY_AND_COMPANY-US201209000755

PATIENT
  Age: 51 Year
  Sex: Male

DRUGS (3)
  1. CYMBALTA [Suspect]
     Indication: DEPRESSION
     Dosage: 1 DF, UNK
  2. CYMBALTA [Suspect]
     Dosage: 60 mg, qd
  3. CYMBALTA [Suspect]
     Dosage: 30 mg, qd

REACTIONS (6)
  - Blood bilirubin increased [Unknown]
  - Dry mouth [Unknown]
  - Hyperhidrosis [Unknown]
  - Night sweats [Unknown]
  - Nausea [Unknown]
  - Influenza like illness [Unknown]
